FAERS Safety Report 5314507-6 (Version None)
Quarter: 2007Q2

REPORT INFORMATION
  Report Type: 
  Country: None (occurrence: None)
  Receive Date: 20070501
  Receipt Date: 20070501
  Transmission Date: 20071010
  Serious: No
  Sender: FDA-Public Use
  Company Number: None

PATIENT
  Sex: Female
  Weight: 72.5755 kg

DRUGS (2)
  1. BUPROPION HCL [Suspect]
     Indication: DEPRESSION
     Dosage: 200 MG Q.D. AM PO
     Route: 048
     Dates: start: 20040101
  2. ADDERALL XR 10 [Concomitant]

REACTIONS (10)
  - ANGER [None]
  - ANXIETY [None]
  - FEELING ABNORMAL [None]
  - INCREASED APPETITE [None]
  - INSOMNIA [None]
  - PANIC ATTACK [None]
  - PARANOIA [None]
  - PHARMACEUTICAL PRODUCT COMPLAINT [None]
  - SLEEP TERROR [None]
  - SUICIDAL IDEATION [None]
